FAERS Safety Report 10057482 (Version 2)
Quarter: 2014Q2

REPORT INFORMATION
  Report Type: Spontaneous
  Country: US (occurrence: US)
  Receive Date: 20140403
  Receipt Date: 20140414
  Transmission Date: 20141212
  Serious: Yes (Hospitalization)
  Sender: FDA-Public Use
  Company Number: US-GILEAD-2014-0098563

PATIENT
  Age: 75 Year
  Sex: Female

DRUGS (2)
  1. LETAIRIS [Suspect]
     Indication: PRODUCT USED FOR UNKNOWN INDICATION
     Dosage: 10 MG, QD
     Route: 048
     Dates: start: 20140123
  2. LETAIRIS [Suspect]
     Dosage: UNK
     Dates: start: 20140322, end: 20140406

REACTIONS (6)
  - Oedema [Unknown]
  - Fluid retention [Unknown]
  - Dyspnoea [Unknown]
  - Oedema [Unknown]
  - Oedema [Unknown]
  - Oedema [Unknown]
